FAERS Safety Report 8935820 (Version 1)
Quarter: 2012Q4

REPORT INFORMATION
  Report Type: 
  Country: US (occurrence: US)
  Receive Date: 20121130
  Receipt Date: 20121130
  Transmission Date: 20130627
  Serious: No
  Sender: FDA-Public Use
  Company Number: US-009507513-1211USA011876

PATIENT
  Age: 93 Year
  Sex: Female

DRUGS (5)
  1. ZIOPTAN [Suspect]
     Indication: GLAUCOMA
     Dosage: 1 DF, qd
  2. AVAPRO [Concomitant]
  3. PLAVIX [Concomitant]
  4. PRAVASTATIN SODIUM [Concomitant]
  5. AMLODIPINE [Concomitant]

REACTIONS (5)
  - Hypersensitivity [Unknown]
  - Pruritus [Unknown]
  - Cough [Unknown]
  - Erythema of eyelid [Unknown]
  - Dry eye [Unknown]
